FAERS Safety Report 18651310 (Version 12)
Quarter: 2021Q4

REPORT INFORMATION
  Report Type: Report from Study
  Country: CA (occurrence: CA)
  Receive Date: 20201222
  Receipt Date: 20211231
  Transmission Date: 20220303
  Serious: Yes (Hospitalization, Other)
  Sender: FDA-Public Use
  Company Number: CA-BAUSCH-BL-2020-037479

PATIENT

DRUGS (19)
  1. CONTRAVE [Suspect]
     Active Substance: BUPROPION HYDROCHLORIDE\NALTREXONE HYDROCHLORIDE
     Indication: Weight control
     Dosage: 90/8 MG, ONE TABLET IN THE MORNING
     Route: 048
     Dates: start: 20201201, end: 20201205
  2. CONTRAVE [Suspect]
     Active Substance: BUPROPION HYDROCHLORIDE\NALTREXONE HYDROCHLORIDE
     Dosage: 90/8 MG, ONE TABLET IN THE MORNING AND ONE IN EVENING
     Route: 048
     Dates: start: 20201206, end: 20201212
  3. CONTRAVE [Suspect]
     Active Substance: BUPROPION HYDROCHLORIDE\NALTREXONE HYDROCHLORIDE
     Dosage: 90/8 MG, 2 TABLETS IN THE MORNING AND ONE IN EVENING
     Route: 048
     Dates: start: 20201213, end: 20210102
  4. CONTRAVE [Suspect]
     Active Substance: BUPROPION HYDROCHLORIDE\NALTREXONE HYDROCHLORIDE
     Dosage: 90/8 MG, 1 TABLET IN THE MORNING AND 1 IN EVENING
     Route: 048
     Dates: start: 20210103, end: 20210104
  5. CONTRAVE [Suspect]
     Active Substance: BUPROPION HYDROCHLORIDE\NALTREXONE HYDROCHLORIDE
     Dosage: 90/8 MG, 1 TABLET IN THE MORNING AND 1 IN EVENING
     Route: 048
     Dates: start: 20210107, end: 2021
  6. CONTRAVE [Suspect]
     Active Substance: BUPROPION HYDROCHLORIDE\NALTREXONE HYDROCHLORIDE
     Dosage: 90/8 MG, 1 TABLET IN THE MORNING
     Route: 048
     Dates: start: 20210201, end: 202102
  7. CONTRAVE [Suspect]
     Active Substance: BUPROPION HYDROCHLORIDE\NALTREXONE HYDROCHLORIDE
     Dosage: 90/8 MG, 1 TABLET IN THE MORNING (SECOND ATTEMPT)
     Route: 048
     Dates: start: 20210312, end: 20210401
  8. CONTRAVE [Suspect]
     Active Substance: BUPROPION HYDROCHLORIDE\NALTREXONE HYDROCHLORIDE
     Dosage: 90/8MG, 2 TABLETS IN THE MORNING AND 2 TABLETS IN EVENING
     Route: 048
     Dates: start: 20210402, end: 20210403
  9. CONTRAVE [Suspect]
     Active Substance: BUPROPION HYDROCHLORIDE\NALTREXONE HYDROCHLORIDE
     Dosage: 90/8 MG, 2 TABLETS IN THE MORNING AND 1 TABLET IN EVENING 07/MAY/2021:WEEK 2 (2ND ATTEMPT TREATMENT)
     Route: 048
     Dates: start: 20210404, end: 20210506
  10. CONTRAVE [Suspect]
     Active Substance: BUPROPION HYDROCHLORIDE\NALTREXONE HYDROCHLORIDE
     Dosage: 90/8 MG, 2 TABLETS IN THE MORNING AND TWO TABLETS IN EVENING
     Route: 048
     Dates: start: 20210507
  11. MORPHINE [Suspect]
     Active Substance: MORPHINE
     Indication: Renal pain
     Dosage: UNK
     Route: 065
     Dates: start: 20210104, end: 20210107
  12. PLAVIX [Interacting]
     Active Substance: CLOPIDOGREL BISULFATE
     Indication: Muscle spasticity
     Dosage: 1 IN 1 D
     Route: 048
     Dates: end: 20210311
  13. CLOPIDOGREL BISULFATE [Suspect]
     Active Substance: CLOPIDOGREL BISULFATE
     Indication: Muscle spasticity
     Dosage: 1 IN 24 HR
     Route: 048
  14. BOSENTAN [Concomitant]
     Active Substance: BOSENTAN
     Indication: Prinzmetal angina
     Dosage: 1 IN 1 D
     Route: 048
  15. CLOPIDOGREL [Concomitant]
     Active Substance: CLOPIDOGREL BISULFATE
     Indication: Thrombosis
     Dosage: 1 IN 1 D
     Route: 048
  16. DEXILANT [Concomitant]
     Active Substance: DEXLANSOPRAZOLE
     Indication: Gastrooesophageal reflux disease
     Dosage: 1 IN 1 D
     Route: 048
  17. ASPIRIN                            /00002701/ [Concomitant]
     Indication: Thrombosis
     Dosage: 1 IN 1 D
     Route: 048
  18. DILTIAZEM [Concomitant]
     Active Substance: DILTIAZEM
     Indication: Prinzmetal angina
     Dosage: 1 IN 1 D
     Route: 048
  19. SPIRONOLACTONE [Concomitant]
     Active Substance: SPIRONOLACTONE
     Indication: Prinzmetal angina
     Dosage: 1 IN 1 D
     Route: 048

REACTIONS (16)
  - Diverticulitis [Unknown]
  - Symptom recurrence [Unknown]
  - Nephrolithiasis [Recovered/Resolved]
  - Hospitalisation [Unknown]
  - Muscle spasms [Unknown]
  - Drug interaction [Unknown]
  - Nocturia [Not Recovered/Not Resolved]
  - Fatigue [Recovering/Resolving]
  - Feeling hot [Unknown]
  - Abdominal pain [Unknown]
  - Insomnia [Recovering/Resolving]
  - Headache [Unknown]
  - Abnormal dreams [Unknown]
  - Nausea [Recovered/Resolved]
  - Drug titration error [Unknown]
  - Product dispensing error [Unknown]

NARRATIVE: CASE EVENT DATE: 20200101
